FAERS Safety Report 9894640 (Version 2)
Quarter: 2014Q3

REPORT INFORMATION
  Report Type: Spontaneous
  Country: US (occurrence: US)
  Receive Date: 20140213
  Receipt Date: 20140829
  Transmission Date: 20150326
  Serious: Yes (Hospitalization, Other)
  Sender: FDA-Public Use
  Company Number: US-009507513-1402USA005894

PATIENT
  Sex: Female
  Weight: 89.34 kg

DRUGS (2)
  1. MUSCLETECH HYDROXYCUT [Suspect]
     Active Substance: DIETARY SUPPLEMENT
     Dosage: UNK
     Dates: start: 20120505
  2. NUVARING [Suspect]
     Active Substance: ETHINYL ESTRADIOL\ETONOGESTREL
     Indication: PRODUCT USED FOR UNKNOWN INDICATION
     Route: 067

REACTIONS (8)
  - Hypertension [Recovered/Resolved]
  - Pulmonary embolism [Unknown]
  - Weight increased [Unknown]
  - Myocardial infarction [Unknown]
  - Embolism venous [None]
  - Hyperhidrosis [None]
  - Palpitations [None]
  - Dizziness [None]

NARRATIVE: CASE EVENT DATE: 200702
